FAERS Safety Report 14187156 (Version 10)
Quarter: 2018Q1

REPORT INFORMATION
  Report Type: Spontaneous
  Country: JP (occurrence: JP)
  Receive Date: 20171114
  Receipt Date: 20180314
  Transmission Date: 20180508
  Serious: No
  Sender: FDA-Public Use
  Company Number: JP-ABBVIE-17K-087-2112255-00

PATIENT
  Age: 75 Year
  Sex: Female

DRUGS (2)
  1. DUODOPA [Suspect]
     Active Substance: CARBIDOPA\LEVODOPA
     Indication: PARKINSON^S DISEASE
     Dosage: MD: 11 ML, CD: 3.4 ML/HR, ED: 1.5 ML/UNIT
     Route: 050
     Dates: start: 201708
  2. LEVODOPA/BENSERAZIDE HYDROCHLORIDE [Concomitant]
     Active Substance: BENSERAZIDE HYDROCHLORIDE\LEVODOPA
     Indication: PRODUCT USED FOR UNKNOWN INDICATION

REACTIONS (8)
  - Product storage error [Unknown]
  - Device occlusion [Unknown]
  - Dyskinesia [Unknown]
  - Fall [Unknown]
  - Device dislocation [Unknown]
  - On and off phenomenon [Unknown]
  - Sensory loss [Unknown]
  - Drug administration error [Unknown]

NARRATIVE: CASE EVENT DATE: 2017
